FAERS Safety Report 6907122-1 (Version None)
Quarter: 2010Q3

REPORT INFORMATION
  Report Type: 
  Country: None (occurrence: None)
  Receive Date: 20100804
  Receipt Date: 20090416
  Transmission Date: 20110219
  Serious: No
  Sender: FDA-Public Use
  Company Number: US-PFIZER INC-2009178327

PATIENT
  Age: 5 Year
  Sex: Male
  Weight: 20.41 kg

DRUGS (3)
  1. VANTIN [Suspect]
     Dosage: UNK
     Dates: start: 20090225
  2. DIMETAPP [Concomitant]
     Dosage: UNK
  3. XOPENEX [Concomitant]
     Dosage: UNK

REACTIONS (1)
  - MUSCLE SPASMS [None]
